FAERS Safety Report 10949696 (Version 1)
Quarter: 2015Q1

REPORT INFORMATION
  Report Type: Spontaneous
  Country: US (occurrence: US)
  Receive Date: 20150324
  Receipt Date: 20150324
  Transmission Date: 20150721
  Serious: Yes (Other)
  Sender: FDA-Public Use
  Company Number: US-AMGEN-USASP2015026846

PATIENT
  Age: 39 Year
  Sex: Female

DRUGS (1)
  1. ENBREL [Suspect]
     Active Substance: ETANERCEPT
     Indication: PSORIASIS
     Dosage: UNK UNK, UNK
     Route: 065
     Dates: start: 1998, end: 2013

REACTIONS (16)
  - Skin test positive [Not Recovered/Not Resolved]
  - Nasopharyngitis [Unknown]
  - Fatigue [Unknown]
  - Lung disorder [Not Recovered/Not Resolved]
  - Body temperature abnormal [Unknown]
  - General physical health deterioration [Not Recovered/Not Resolved]
  - Pneumonia fungal [Not Recovered/Not Resolved]
  - Malaise [Unknown]
  - Faeces discoloured [Unknown]
  - Lung infection [Unknown]
  - Fungal infection [Not Recovered/Not Resolved]
  - Mucosal discolouration [Unknown]
  - Streptococcal infection [Unknown]
  - Diarrhoea [Unknown]
  - Asthenia [Unknown]
  - Increased upper airway secretion [Not Recovered/Not Resolved]

NARRATIVE: CASE EVENT DATE: 2004
